FAERS Safety Report 5990077-4 (Version None)
Quarter: 2008Q4

REPORT INFORMATION
  Report Type: 
  Country: None (occurrence: None)
  Receive Date: 20081211
  Receipt Date: 20081205
  Transmission Date: 20090506
  Serious: Yes (Life-Threatening)
  Sender: FDA-Public Use
  Company Number: JP-BRISTOL-MYERS SQUIBB COMPANY-14407621

PATIENT
  Age: 70 Year
  Sex: Female

DRUGS (6)
  1. STADOL [Suspect]
     Indication: ANAESTHESIA PROCEDURE
     Route: 042
     Dates: start: 20081106, end: 20081106
  2. PROPOFOL [Suspect]
     Indication: ANAESTHESIA PROCEDURE
     Route: 040
     Dates: start: 20081106, end: 20081106
  3. PENTCILLIN [Suspect]
     Indication: INFECTION PROPHYLAXIS
     Route: 041
     Dates: start: 20081106, end: 20081106
  4. ATROPINE SULFATE [Concomitant]
     Route: 040
     Dates: start: 20081106, end: 20081106
  5. SEVOFLURANE [Concomitant]
     Route: 055
     Dates: start: 20081106, end: 20081106
  6. NITROUS OXIDE [Concomitant]
     Route: 055
     Dates: start: 20081106, end: 20081106

REACTIONS (1)
  - ANAPHYLACTIC SHOCK [None]
